FAERS Safety Report 8105027-4 (Version None)
Quarter: 2012Q1

REPORT INFORMATION
  Report Type: 
  Country: None (occurrence: None)
  Receive Date: 20120201
  Receipt Date: 20120126
  Transmission Date: 20120608
  Serious: Yes (Other)
  Sender: FDA-Public Use
  Company Number: JP-GLAXOSMITHKLINE-B0778410A

PATIENT

DRUGS (6)
  1. CYCLOPHOSPHAMIDE [Concomitant]
     Route: 065
  2. CARBOPLATIN [Concomitant]
     Route: 065
  3. ONCOVIN [Concomitant]
     Route: 042
  4. ETOPOSIDE [Concomitant]
     Route: 065
  5. ALKERAN [Suspect]
     Indication: INTRAOCULAR RETINOBLASTOMA
     Dosage: 22.1MG CUMULATIVE DOSE
     Route: 031
  6. DOXORUBICIN HCL [Concomitant]
     Route: 042

REACTIONS (2)
  - RHABDOMYOSARCOMA [None]
  - BONE SARCOMA [None]
